FAERS Safety Report 8906267 (Version 1)
Quarter: 2012Q4

REPORT INFORMATION
  Report Type: Spontaneous
  Country: CA (occurrence: None)
  Receive Date: 20121112
  Receipt Date: 20121112
  Transmission Date: 20130627
  Serious: Yes (Hospitalization)
  Sender: FDA-Public Use
  Company Number: None

PATIENT
  Age: 76 Year
  Sex: Female
  Weight: 77.11 kg

DRUGS (1)
  1. FOSAMAX [Suspect]
     Indication: OSTEOARTHRITIS
     Route: 048
     Dates: start: 20120924, end: 20121030

REACTIONS (6)
  - Stevens-Johnson syndrome [None]
  - Malaise [None]
  - Influenza like illness [None]
  - Aphagia [None]
  - Fluid intake reduced [None]
  - Dehydration [None]
